FAERS Safety Report 7383391-1 (Version None)
Quarter: 2011Q1

REPORT INFORMATION
  Report Type: 
  Country: None (occurrence: None)
  Receive Date: 20110325
  Receipt Date: 20110325
  Transmission Date: 20110831
  Serious: Yes (Hospitalization)
  Sender: FDA-Public Use
  Company Number: None

PATIENT
  Age: 93 Year
  Sex: Female

DRUGS (13)
  1. METOPROLOL TARTRATE [Suspect]
     Indication: ATRIAL FIBRILLATION
     Dosage: 25 MG PO BID CHRONIC
     Route: 048
  2. MULTAQ [Suspect]
     Indication: ATRIAL FIBRILLATION
     Dosage: 400 MG PO BID NEW
     Route: 048
  3. XOPENEX [Concomitant]
  4. BREATH FREE [Concomitant]
  5. DIGOXIN [Suspect]
     Indication: ATRIAL FIBRILLATION
     Dosage: 0.125 MG DAILY PO NEW
     Route: 048
  6. PULMICORT [Concomitant]
  7. SLOW FE [Concomitant]
  8. CARDIZEM [Suspect]
     Indication: ATRIAL FIBRILLATION
     Dosage: 60 MG BID PO CHRONIC
     Route: 048
  9. OCULAR LUBRICANT [Concomitant]
  10. NASONEX [Concomitant]
  11. ARTIFICIAL TEARS [Concomitant]
  12. MUCINEX [Concomitant]
  13. DORZOLAMIDE/TIMIDOL [Concomitant]

REACTIONS (3)
  - ASTHENIA [None]
  - BRADYCARDIA [None]
  - DIZZINESS [None]
